FAERS Safety Report 4626594-9 (Version None)
Quarter: 2005Q1

REPORT INFORMATION
  Report Type: 
  Country: None (occurrence: None)
  Receive Date: 20050330
  Receipt Date: 20050309
  Transmission Date: 20050727
  Serious: Yes (Hospitalization)
  Sender: FDA-Public Use
  Company Number: US_0503114326

PATIENT
  Sex: Male

DRUGS (2)
  1. STRATTERA [Suspect]
  2. PROZAC [Suspect]
     Indication: DEPRESSION
     Dosage: 10 MG/1 DAY

REACTIONS (2)
  - DEPRESSION [None]
  - SUICIDAL IDEATION [None]
